FAERS Safety Report 7750148-9 (Version None)
Quarter: 2011Q3

REPORT INFORMATION
  Report Type: 
  Country: None (occurrence: None)
  Receive Date: 20110914
  Receipt Date: 20110912
  Transmission Date: 20111222
  Serious: Yes (Other)
  Sender: FDA-Public Use
  Company Number: JP-PFIZER INC-2011209978

PATIENT
  Sex: Male

DRUGS (5)
  1. LOSARTAN POTASSIUM [Concomitant]
     Dosage: UNK
  2. SPIRONOLACTONE [Concomitant]
     Dosage: UNK
  3. LIPITOR [Suspect]
     Dosage: 10 MG PER DAY
     Route: 048
  4. PLAVIX [Concomitant]
     Dosage: UNK
  5. RABEPRAZOLE SODIUM [Concomitant]
     Dosage: UNK

REACTIONS (3)
  - BLOOD LACTATE DEHYDROGENASE INCREASED [None]
  - BLOOD CREATINE PHOSPHOKINASE INCREASED [None]
  - HEPATIC FUNCTION ABNORMAL [None]
